FAERS Safety Report 9835506 (Version 1)
Quarter: 2014Q1

REPORT INFORMATION
  Report Type: Spontaneous
  Country: US (occurrence: US)
  Receive Date: 20140122
  Receipt Date: 20140122
  Transmission Date: 20141002
  Serious: No
  Sender: FDA-Public Use
  Company Number: US-BRISTOL-MYERS SQUIBB COMPANY-19735539

PATIENT
  Age: 77 Year
  Sex: Male

DRUGS (8)
  1. ELIQUIS [Suspect]
  2. ZETIA [Concomitant]
  3. DILTIAZEM HCL [Concomitant]
  4. ATORVASTATIN [Concomitant]
  5. DIGOXIN [Concomitant]
  6. HYDROCHLOROTHIAZIDE [Concomitant]
  7. TOPROL [Concomitant]
  8. PROPAFENONE [Concomitant]

REACTIONS (1)
  - Diarrhoea [Unknown]
